FAERS Safety Report 8361928-3 (Version None)
Quarter: 2012Q2

REPORT INFORMATION
  Report Type: 
  Country: None (occurrence: None)
  Receive Date: 20120515
  Receipt Date: 20120224
  Transmission Date: 20120825
  Serious: No
  Sender: FDA-Public Use
  Company Number: US-MYLANLABS-2012S1003036

PATIENT
  Age: 25 Year
  Sex: Female

DRUGS (1)
  1. BUDESONIDE [Suspect]
     Indication: CROHN'S DISEASE
     Dates: start: 20120201, end: 20120201

REACTIONS (2)
  - DYSPEPSIA [None]
  - ABDOMINAL PAIN UPPER [None]
